FAERS Safety Report 23126796 (Version 1)
Quarter: 2023Q4

REPORT INFORMATION
  Report Type: Spontaneous
  Country: US (occurrence: US)
  Receive Date: 20231030
  Receipt Date: 20231030
  Transmission Date: 20240110
  Serious: No
  Sender: FDA-Public Use
  Company Number: US-WOODWARD-2023-US-026701

PATIENT
  Age: 85 Year
  Sex: Female

DRUGS (2)
  1. COREG CR [Suspect]
     Active Substance: CARVEDILOL PHOSPHATE
     Indication: Product used for unknown indication
     Dosage: 1 TABLET (10MG) DAILY
     Route: 048
     Dates: start: 202307
  2. GLUCOTROL [Concomitant]
     Active Substance: GLIPIZIDE

REACTIONS (8)
  - Feeling hot [Not Recovered/Not Resolved]
  - Burning sensation [Not Recovered/Not Resolved]
  - Dizziness [Not Recovered/Not Resolved]
  - Fatigue [Not Recovered/Not Resolved]
  - Discomfort [Not Recovered/Not Resolved]
  - Paraesthesia [Not Recovered/Not Resolved]
  - Increased appetite [Not Recovered/Not Resolved]
  - Vision blurred [Not Recovered/Not Resolved]

NARRATIVE: CASE EVENT DATE: 20230701
